FAERS Safety Report 7922058 (Version 3)
Quarter: 2012Q4

REPORT INFORMATION
  Report Type: 
  Country: US (occurrence: US)
  Receive Date: 20110429
  Receipt Date: 20120913
  Transmission Date: 20130627
  Serious: No
  Sender: FDA-Public Use
  Company Number: US-ASTRAZENECA-2010SE56579

PATIENT
  Age: 69 Year
  Sex: Female

DRUGS (2)
  1. NEXIUM [Suspect]
     Route: 048
  2. NEXIUM [Suspect]
     Route: 048

REACTIONS (7)
  - Pain [Unknown]
  - Hiatus hernia [Unknown]
  - Ulcer [Unknown]
  - Adverse event [Unknown]
  - Oropharyngeal pain [Unknown]
  - Speech disorder [Unknown]
  - Drug dose omission [Unknown]
